FAERS Safety Report 18201306 (Version 1)
Quarter: 2020Q3

REPORT INFORMATION
  Report Type: Spontaneous
  Country: GB (occurrence: GB)
  Receive Date: 20200827
  Receipt Date: 20200827
  Transmission Date: 20201103
  Serious: Yes (Other)
  Sender: FDA-Public Use
  Company Number: GB-TEVA-2020-GB-1820271

PATIENT
  Age: 56 Year
  Sex: Male
  Weight: 88 kg

DRUGS (2)
  1. IBUPROFEN. [Concomitant]
     Active Substance: IBUPROFEN
     Indication: FRACTURE PAIN
     Dosage: 800MG
  2. TRAMADOL. [Suspect]
     Active Substance: TRAMADOL
     Indication: FRACTURE PAIN
     Dosage: 100MG
     Route: 048
     Dates: start: 20200728, end: 20200729

REACTIONS (8)
  - Vision blurred [Recovering/Resolving]
  - Orthostatic intolerance [Unknown]
  - Drug ineffective [Unknown]
  - Dysuria [Recovering/Resolving]
  - Bradycardia [Recovering/Resolving]
  - Hypertension [Recovering/Resolving]
  - Fatigue [Recovering/Resolving]
  - Dizziness [Recovering/Resolving]

NARRATIVE: CASE EVENT DATE: 20200728
